FAERS Safety Report 19482056 (Version 1)
Quarter: 2021Q2

REPORT INFORMATION
  Report Type: Spontaneous
  Country: US (occurrence: US)
  Receive Date: 20210630
  Receipt Date: 20210630
  Transmission Date: 20210717
  Serious: Yes (Other)
  Sender: FDA-Public Use
  Company Number: None

PATIENT
  Age: 63 Year
  Sex: Female
  Weight: 68.04 kg

DRUGS (6)
  1. FLUTICASONE PROPIONATE NASAL SPRAY USP [Suspect]
     Active Substance: FLUTICASONE PROPIONATE
     Indication: ACUTE SINUSITIS
     Dosage: ?          QUANTITY:2 DF DOSAGE FORM;?
     Route: 045
     Dates: end: 20210520
  2. VITAMIN D3 [Concomitant]
     Active Substance: CHOLECALCIFEROL
  3. NEXIUM [Concomitant]
     Active Substance: ESOMEPRAZOLE MAGNESIUM
  4. CLARITIN [Concomitant]
     Active Substance: LORATADINE
  5. ATIVAN [Concomitant]
     Active Substance: LORAZEPAM
  6. MUCINEX [Concomitant]
     Active Substance: GUAIFENESIN

REACTIONS (5)
  - Product tampering [None]
  - Nasopharyngitis [None]
  - Pain [None]
  - Rhinalgia [None]
  - Nasal discomfort [None]

NARRATIVE: CASE EVENT DATE: 20210519
